FAERS Safety Report 5691272-4 (Version None)
Quarter: 2008Q2

REPORT INFORMATION
  Report Type: 
  Country: None (occurrence: None)
  Receive Date: 20080402
  Receipt Date: 20080129
  Transmission Date: 20081010
  Serious: No
  Sender: FDA-Public Use
  Company Number: US-BAYER-200816764NA

PATIENT
  Age: 29 Year
  Sex: Female
  Weight: 70 kg

DRUGS (1)
  1. YAZ [Suspect]
     Indication: DRUG USE FOR UNKNOWN INDICATION
     Route: 048

REACTIONS (3)
  - DIZZINESS [None]
  - HEADACHE [None]
  - HYPERTENSION [None]
